FAERS Safety Report 26207978 (Version 1)
Quarter: 2025Q4

REPORT INFORMATION
  Report Type: Spontaneous
  Country: US (occurrence: None)
  Receive Date: 20251224
  Receipt Date: 20251224
  Transmission Date: 20260117
  Serious: No
  Sender: FDA-CTU
  Company Number: None

PATIENT
  Age: 71 Year
  Sex: Male
  Weight: 65.32 kg

DRUGS (1)
  1. TEMOZOLOMIDE [Suspect]
     Active Substance: TEMOZOLOMIDE
     Indication: Brain neoplasm malignant
     Dosage: TAKE 1 CAPSULE DAILY FOR 5 DAYS, THEN OFF FOR 28 DAYS AS DIRECTED ;
     Route: 048
     Dates: start: 202507

REACTIONS (1)
  - Condition aggravated [None]
